FAERS Safety Report 9518499 (Version 1)
Quarter: 2013Q1

REPORT INFORMATION
  Report Type: Spontaneous
  Country: US (occurrence: None)
  Receive Date: 20130305
  Receipt Date: 20130305
  Transmission Date: 20140127
  Serious: Yes (Hospitalization)
  Sender: FDA-Public Use
  Company Number: 163-21880-12081065

PATIENT
  Age: 77 Year
  Sex: Female

DRUGS (17)
  1. REVLIMID [Suspect]
     Dosage: 15 MG, 21 IN 21 D, PO
     Route: 048
     Dates: start: 20120725, end: 20120730
  2. DEXAMETHASONE [Concomitant]
  3. CITALOPRAM(CITALOPRAM) [Concomitant]
  4. PROTONIX [Concomitant]
  5. POTASSIUM(POTASSIUM) [Concomitant]
  6. ACYCLOVIR(ACICLOVIR) [Concomitant]
  7. PREDNISONE(PREDNISONE) [Concomitant]
  8. FOLIC ACID (FOLIC ACID) [Concomitant]
  9. ALLOPURINOL(ALLOPURINOL) [Concomitant]
  10. METOPROLOL(METOPROLOL) [Concomitant]
  11. REQUIP (ROPINIROLE HYDROCHLORIDE) [Concomitant]
  12. COLESTID(COLESTIPOL HYDROCHLORIDE) [Concomitant]
  13. NORVASC(AMLODIPINE BESILATE) [Concomitant]
  14. ASPIRIN(ACETYLSALICYLIC ACID) [Concomitant]
  15. ODANSETRON(ODANSETRON) [Concomitant]
  16. AMBIEN(ZOLPIDEM TARTRATE) [Concomitant]
  17. AMLODIPINE(AMLODIPINE) [Concomitant]

REACTIONS (6)
  - Haemolytic anaemia [None]
  - Renal failure acute [None]
  - Urosepsis [None]
  - Nausea [None]
  - Vomiting [None]
  - Platelet count decreased [None]
